FAERS Safety Report 9723317 (Version 5)
Quarter: 2015Q1

REPORT INFORMATION
  Report Type: Spontaneous
  Country: US (occurrence: US)
  Receive Date: 20131202
  Receipt Date: 20150126
  Transmission Date: 20150721
  Serious: No
  Sender: FDA-Public Use
  Company Number: US-GLAXOSMITHKLINE-A0757882A

PATIENT
  Sex: Female

DRUGS (8)
  1. LORAZEPAM. [Concomitant]
     Active Substance: LORAZEPAM
  2. SYNTHROID [Concomitant]
     Active Substance: LEVOTHYROXINE SODIUM
  3. FLONASE [Suspect]
     Active Substance: FLUTICASONE PROPIONATE
     Indication: DYSPNOEA
     Dosage: 2 PUFF(S), QD
     Route: 045
     Dates: start: 19930101
  4. CLARITIN (NOS) [Concomitant]
  5. FLONASE [Suspect]
     Active Substance: FLUTICASONE PROPIONATE
     Indication: CHRONIC SINUSITIS
     Dosage: 2 PUFF(S), BID
     Route: 045
  6. FLUTICASONE PROPIONATE NASAL SPRAY [Suspect]
     Active Substance: FLUTICASONE PROPIONATE
     Indication: RHINITIS ALLERGIC
     Dosage: UNK UNK, U
     Route: 045
  7. DIOVAN [Concomitant]
     Active Substance: VALSARTAN
  8. PEPCID AC [Concomitant]
     Active Substance: FAMOTIDINE

REACTIONS (11)
  - Headache [Unknown]
  - Dizziness [Unknown]
  - Joint injury [Unknown]
  - Influenza [Unknown]
  - Bronchitis [Unknown]
  - Chronic sinusitis [Unknown]
  - Back injury [Unknown]
  - Hypersensitivity [Unknown]
  - Palpitations [Unknown]
  - Malaise [Unknown]
  - Dry eye [Not Recovered/Not Resolved]
